FAERS Safety Report 7719268-9 (Version None)
Quarter: 2011Q3

REPORT INFORMATION
  Report Type: 
  Country: None (occurrence: None)
  Receive Date: 20110830
  Receipt Date: 20110824
  Transmission Date: 20111222
  Serious: Yes (Hospitalization)
  Sender: FDA-Public Use
  Company Number: IT-GILEAD-2011-0042726

PATIENT

DRUGS (3)
  1. NORVIR [Concomitant]
     Indication: HIV INFECTION
     Route: 064
     Dates: start: 20071221, end: 20110720
  2. TRUVADA [Suspect]
     Indication: HIV INFECTION
     Route: 064
     Dates: start: 20071221, end: 20110720
  3. REYATAZ [Suspect]
     Indication: HIV INFECTION
     Route: 064
     Dates: start: 20071221, end: 20110720

REACTIONS (1)
  - HYDROPS FOETALIS [None]
